FAERS Safety Report 6741160-7 (Version None)
Quarter: 2010Q2

REPORT INFORMATION
  Report Type: 
  Country: None (occurrence: None)
  Receive Date: 20100525
  Receipt Date: 20100525
  Transmission Date: 20101027
  Serious: Yes (Other)
  Sender: FDA-Public Use
  Company Number: None

PATIENT
  Sex: Female
  Weight: 55.3388 kg

DRUGS (1)
  1. ESTRING [Suspect]
     Indication: ATROPHIC VULVOVAGINITIS
     Dosage: ESTRADIOL 2MG VAGINAL RING  Q3MO VAGINAL
     Route: 067
     Dates: start: 20100101, end: 20100304

REACTIONS (1)
  - LIVEDO RETICULARIS [None]
